FAERS Safety Report 21886677 (Version 1)
Quarter: 2023Q1

REPORT INFORMATION
  Report Type: Spontaneous
  Country: US (occurrence: None)
  Receive Date: 20230119
  Receipt Date: 20230119
  Transmission Date: 20230417
  Serious: Yes (Other)
  Sender: FDA-Public Use
  Company Number: None

PATIENT
  Age: 54 Year
  Sex: Female
  Weight: 67.5 kg

DRUGS (8)
  1. ADAPALENE AND BENZOYL PEROXIDE [Suspect]
     Active Substance: ADAPALENE\BENZOYL PEROXIDE
     Indication: Acne
     Dosage: OTHER QUANTITY : 1 DROP(S);?FREQUENCY : AT BEDTIME;?
     Route: 061
     Dates: start: 20210201, end: 20230119
  2. SYNTHROID [Concomitant]
     Active Substance: LEVOTHYROXINE SODIUM
  3. ESTRADIOL [Concomitant]
     Active Substance: ESTRADIOL
  4. MEDROXYPROGESTERONE [Concomitant]
     Active Substance: MEDROXYPROGESTERONE
  5. TRAZODONE [Concomitant]
     Active Substance: TRAZODONE HYDROCHLORIDE
  6. LIOTHYRONINE [Concomitant]
     Active Substance: LIOTHYRONINE
  7. CALCIUM 600 +D [Concomitant]
  8. RENEWLIFE PROBIOTIC EXTRA CARE [Concomitant]

REACTIONS (8)
  - Swelling of eyelid [None]
  - Erythema of eyelid [None]
  - Eyelids pruritus [None]
  - Hypersensitivity [None]
  - Rash pruritic [None]
  - Rash [None]
  - Application site rash [None]
  - Application site pruritus [None]

NARRATIVE: CASE EVENT DATE: 20230119
